FAERS Safety Report 8714893 (Version 4)
Quarter: 2013Q3

REPORT INFORMATION
  Report Type: Report from Study
  Country: JP (occurrence: JP)
  Receive Date: 20120809
  Receipt Date: 20130912
  Transmission Date: 20140515
  Serious: Yes (Hospitalization)
  Sender: FDA-Public Use
  Company Number: JP-VERTEX PHARMACEUTICALS INC.-AE-2012-011607

PATIENT
  Age: 61 Year
  Sex: Female

DRUGS (6)
  1. VX-950 (TELAPREVIR) [Suspect]
     Indication: HEPATITIS C
     Dosage: 1000 MG, QD
     Route: 048
     Dates: start: 20120502, end: 20120627
  2. RIBAVIRIN [Concomitant]
     Dosage: 200 MG, QD
     Route: 048
     Dates: start: 20120502, end: 20120627
  3. PEGINTERFERON ALFA-2B [Concomitant]
     Dosage: 1 ?G/KG, QW
     Route: 058
     Dates: start: 20120502, end: 20120625
  4. THYRADIN [Concomitant]
     Dosage: UNK
     Route: 048
  5. DIOVAN [Concomitant]
     Dosage: UNK
     Route: 048
  6. PARIET [Concomitant]
     Dosage: 10 MG, QD
     Route: 048
     Dates: end: 20120725

REACTIONS (1)
  - Dizziness [Recovered/Resolved]
